FAERS Safety Report 21528566 (Version 2)
Quarter: 2022Q4

REPORT INFORMATION
  Report Type: Report from Study
  Country: US (occurrence: US)
  Receive Date: 20221031
  Receipt Date: 20221124
  Transmission Date: 20230112
  Serious: Yes (Hospitalization, Other)
  Sender: FDA-Public Use
  Company Number: US-EXELIXIS-CABO-22057323

PATIENT
  Sex: Female

DRUGS (1)
  1. CABOMETYX [Suspect]
     Active Substance: CABOZANTINIB S-MALATE
     Indication: Metastases to bone
     Dosage: 20 MG, QD
     Route: 048

REACTIONS (7)
  - Renal disorder [Unknown]
  - Full blood count decreased [Recovering/Resolving]
  - Adverse event [Unknown]
  - Blood creatinine increased [Recovering/Resolving]
  - Oral discomfort [Unknown]
  - Dry mouth [Unknown]
  - Off label use [Unknown]
